FAERS Safety Report 19066893 (Version 1)
Quarter: 2021Q1

REPORT INFORMATION
  Report Type: Spontaneous
  Country: PT (occurrence: PT)
  Receive Date: 20210329
  Receipt Date: 20210329
  Transmission Date: 20210420
  Serious: Yes (Hospitalization, Other)
  Sender: FDA-Public Use
  Company Number: PT-AUROBINDO-AUR-APL-2021-011108

PATIENT
  Age: 57 Year
  Sex: Female

DRUGS (2)
  1. BISOPROLOL [Suspect]
     Active Substance: BISOPROLOL
     Dosage: 5 MILLIGRAM, DAILY
     Route: 065
  2. MEFLOQUINE [Suspect]
     Active Substance: MEFLOQUINE
     Indication: PROPHYLACTIC CHEMOTHERAPY
     Dosage: 250 MILLIGRAM, EVERY WEEK
     Route: 048

REACTIONS (5)
  - Presyncope [Unknown]
  - Drug interaction [Unknown]
  - Fatigue [Unknown]
  - Sinus bradycardia [Unknown]
  - Atrioventricular block [Unknown]
